FAERS Safety Report 15364426 (Version 1)
Quarter: 2018Q3

REPORT INFORMATION
  Report Type: Spontaneous
  Country: CN (occurrence: CN)
  Receive Date: 20180909
  Receipt Date: 20180909
  Transmission Date: 20181010
  Serious: Yes (Life-Threatening, Other)
  Sender: FDA-Public Use
  Company Number: CN-BAXTER-2018BAX022983

PATIENT
  Age: 60 Year
  Sex: Female
  Weight: 60 kg

DRUGS (11)
  1. HERCEPTIN [Suspect]
     Active Substance: TRASTUZUMAB
     Dosage: DOSE RE?INTRODUCED
     Route: 041
     Dates: start: 20180507, end: 20180507
  2. 5% GLUCOSE  INJECTION [Suspect]
     Active Substance: DEXTROSE
     Dosage: DEXAMETHASONE 20 MG + 5% GS 100ML IV GTT
     Route: 041
     Dates: start: 20180507
  3. DEXAMETHASONE. [Suspect]
     Active Substance: DEXAMETHASONE
     Dosage: DEXAMETHASONE 20 MG + 5% GS 100 ML
     Route: 041
     Dates: start: 20180507
  4. PHENERGAN [Suspect]
     Active Substance: PROMETHAZINE HYDROCHLORIDE
     Indication: ANTIALLERGIC THERAPY
     Route: 030
     Dates: start: 20180507
  5. 0.9% SODIUM CHLORIDE INJECTION [Suspect]
     Active Substance: SODIUM CHLORIDE
     Indication: MEDICATION DILUTION
     Route: 041
     Dates: start: 20180507, end: 20180507
  6. 5% GLUCOSE  INJECTION [Suspect]
     Active Substance: DEXTROSE
     Indication: MEDICATION DILUTION
     Dosage: DEXAMETHASONE 20 MG+ 5% GS 10 ML IV BOLUS
     Route: 040
     Dates: start: 20180507
  7. DEXAMETHASONE. [Suspect]
     Active Substance: DEXAMETHASONE
     Indication: ANTIALLERGIC THERAPY
     Dosage: DEXAMETHASONE + 5 PERCENT GLUCOSE SALINE (GS) 10ML
     Route: 040
     Dates: start: 20180507
  8. 0.9% SODIUM CHLORIDE INJECTION [Suspect]
     Active Substance: SODIUM CHLORIDE
     Dosage: DOSE RE?INTRODUCED
     Route: 041
     Dates: start: 20180507, end: 20180507
  9. CARBOPLATIN. [Suspect]
     Active Substance: CARBOPLATIN
     Indication: CHEMOTHERAPY
     Route: 041
     Dates: start: 20180507
  10. HERCEPTIN [Suspect]
     Active Substance: TRASTUZUMAB
     Indication: CHEMOTHERAPY
     Route: 041
     Dates: start: 20180507, end: 20180507
  11. DIPHENHYDRAMINE. [Suspect]
     Active Substance: DIPHENHYDRAMINE
     Indication: ANTIALLERGIC THERAPY
     Route: 030
     Dates: start: 20180507

REACTIONS (6)
  - Condition aggravated [Unknown]
  - Cyanosis [Recovering/Resolving]
  - Chills [Recovering/Resolving]
  - Metastases to bone [Unknown]
  - Pyrexia [Recovered/Resolved]
  - Invasive ductal breast carcinoma [Unknown]

NARRATIVE: CASE EVENT DATE: 20180507
